FAERS Safety Report 15192304 (Version 3)
Quarter: 2018Q3

REPORT INFORMATION
  Report Type: Spontaneous
  Country: DE (occurrence: DE)
  Receive Date: 20180724
  Receipt Date: 20180829
  Transmission Date: 20181010
  Serious: Yes (Other)
  Sender: FDA-Public Use
  Company Number: DE-VIFOR (INTERNATIONAL) INC.-VIT-2018-07247

PATIENT
  Age: 75 Year
  Sex: Female
  Weight: 55 kg

DRUGS (2)
  1. ZEMPLAR [Concomitant]
     Active Substance: PARICALCITOL
  2. VELTASSA [Suspect]
     Active Substance: PATIROMER
     Indication: HYPERKALAEMIA
     Route: 048
     Dates: start: 20180611, end: 2018

REACTIONS (5)
  - Hypercalcaemia [Unknown]
  - Blood calcium increased [Recovered/Resolved]
  - Asthenia [Unknown]
  - Diarrhoea infectious [Recovered/Resolved]
  - Clostridial infection [Recovered/Resolved]

NARRATIVE: CASE EVENT DATE: 2018
